FAERS Safety Report 6837313-X (Version None)
Quarter: 2010Q3

REPORT INFORMATION
  Report Type: 
  Country: None (occurrence: None)
  Receive Date: 20100713
  Receipt Date: 20070509
  Transmission Date: 20110219
  Serious: Yes (Other)
  Sender: FDA-Public Use
  Company Number: US-PFIZER INC-2007036949

PATIENT
  Sex: Female
  Weight: 73.636 kg

DRUGS (6)
  1. CHANTIX [Suspect]
     Indication: SMOKING CESSATION THERAPY
     Dates: start: 20070503, end: 20070503
  2. TETRACYCLINE [Suspect]
  3. FLONASE [Concomitant]
  4. ALLEGRA D 24 HOUR [Concomitant]
  5. VITAMINS [Concomitant]
  6. ALBUTEROL [Concomitant]
     Route: 055

REACTIONS (12)
  - ABNORMAL SENSATION IN EYE [None]
  - ASTHENIA [None]
  - ASTHMA [None]
  - CHEST DISCOMFORT [None]
  - CHEST PAIN [None]
  - DIZZINESS [None]
  - DYSPNOEA [None]
  - HYPERSENSITIVITY [None]
  - INFLUENZA LIKE ILLNESS [None]
  - MUSCULAR WEAKNESS [None]
  - MYALGIA [None]
  - RASH [None]
